FAERS Safety Report 7831184-0 (Version None)
Quarter: 2011Q4

REPORT INFORMATION
  Report Type: 
  Country: None (occurrence: None)
  Receive Date: 20111021
  Receipt Date: 20111007
  Transmission Date: 20120403
  Serious: Yes (Other)
  Sender: FDA-Public Use
  Company Number: US-ROCHE-1003133

PATIENT
  Sex: Female

DRUGS (1)
  1. BONIVA [Suspect]
     Indication: PRODUCT USED FOR UNKNOWN INDICATION

REACTIONS (5)
  - PYREXIA [None]
  - BONE DISORDER [None]
  - SYSTEMIC LUPUS ERYTHEMATOSUS [None]
  - ORAL DISORDER [None]
  - STOMATITIS [None]
